FAERS Safety Report 15254235 (Version 1)
Quarter: 2018Q3

REPORT INFORMATION
  Report Type: Spontaneous
  Country: US (occurrence: US)
  Receive Date: 20180717
  Receipt Date: 20180717
  Transmission Date: 20181010
  Serious: Yes (Other)
  Sender: FDA-Public Use
  Company Number: None

PATIENT
  Age: 70 Year
  Sex: Female
  Weight: 43.54 kg

DRUGS (5)
  1. NATURE?THROID [Concomitant]
     Active Substance: THYROID, PORCINE
  2. FISH OIL [Concomitant]
     Active Substance: FISH OIL
  3. DOXYCYCLINE HYCLATE 100 MG TAB [Suspect]
     Active Substance: DOXYCYCLINE HYCLATE
     Indication: RASH
     Route: 048
     Dates: start: 20161021, end: 20161025
  4. MULTIVITAMINE [Concomitant]
  5. DOXYCYCLINE HYCLATE 100 MG TAB [Suspect]
     Active Substance: DOXYCYCLINE HYCLATE
     Indication: INFLAMMATION
     Route: 048
     Dates: start: 20161021, end: 20161025

REACTIONS (7)
  - Facial pain [None]
  - Vision blurred [None]
  - Intracranial pressure increased [None]
  - Nervous system disorder [None]
  - Tinnitus [None]
  - Sinusitis [None]
  - Drug hypersensitivity [None]

NARRATIVE: CASE EVENT DATE: 20161021
